FAERS Safety Report 4505708-5 (Version None)
Quarter: 2004Q4

REPORT INFORMATION
  Report Type: 
  Country: None (occurrence: None)
  Receive Date: 20041119
  Receipt Date: 20041116
  Transmission Date: 20050328
  Serious: Yes (Death)
  Sender: FDA-Public Use
  Company Number: PHEH2004US12411

PATIENT

DRUGS (1)
  1. EXELON [Suspect]
     Dosage: UNK,UNK

REACTIONS (3)
  - FALL [None]
  - HYPOTENSION [None]
  - INJURY [None]
